FAERS Safety Report 6835867-0 (Version None)
Quarter: 2010Q3

REPORT INFORMATION
  Report Type: 
  Country: None (occurrence: None)
  Receive Date: 20100713
  Receipt Date: 20100702
  Transmission Date: 20110219
  Serious: Yes (Congenital Anomaly)
  Sender: FDA-Public Use
  Company Number: FR-GILEAD-2010-0030216

PATIENT

DRUGS (2)
  1. TRUVADA [Suspect]
     Indication: HIV INFECTION
     Route: 064
     Dates: start: 20090101
  2. VIRAMUNE [Suspect]
     Route: 064
     Dates: start: 20090101

REACTIONS (1)
  - HYPOPLASTIC LEFT HEART SYNDROME [None]
